FAERS Safety Report 25985236 (Version 1)
Quarter: 2025Q4

REPORT INFORMATION
  Report Type: Spontaneous
  Country: US (occurrence: US)
  Receive Date: 20251031
  Receipt Date: 20251031
  Transmission Date: 20260118
  Serious: No
  Sender: Tarsus Pharmaceuticals
  Company Number: US-TARSUS PHARMACEUTICALS-TSP-US-2025-000842

PATIENT

DRUGS (3)
  1. XDEMVY [Suspect]
     Active Substance: LOTILANER
     Indication: Arthropod infestation
     Dosage: 1 DROP, BID (1 DROP PER EYE TWICE DAILY)
     Route: 047
     Dates: start: 20250723, end: 20250811
  2. VOLTAREN [Concomitant]
     Active Substance: DICLOFENAC SODIUM
     Indication: Shoulder operation
     Dosage: UNK
     Route: 065
     Dates: start: 20250830, end: 20250901
  3. HYDROCODONE [Concomitant]
     Active Substance: HYDROCODONE
     Indication: Shoulder operation
     Dosage: UNK
     Route: 065
     Dates: start: 20250830, end: 20250901

REACTIONS (3)
  - Dizziness [Recovered/Resolved]
  - Headache [Not Recovered/Not Resolved]
  - Muscle tightness [Not Recovered/Not Resolved]

NARRATIVE: CASE EVENT DATE: 20250801
